FAERS Safety Report 9387705 (Version 5)
Quarter: 2013Q3

REPORT INFORMATION
  Report Type: Spontaneous
  Country: JP (occurrence: JP)
  Receive Date: 20130708
  Receipt Date: 20130822
  Transmission Date: 20140515
  Serious: Yes (Life-Threatening)
  Sender: FDA-Public Use
  Company Number: JP-ASTRAZENECA-2013SE49059

PATIENT
  Age: 66 Year
  Sex: Male

DRUGS (24)
  1. DIPRIVAN - KIT [Suspect]
     Indication: SEDATION
     Dosage: 1.5 MCG/ML
     Route: 042
     Dates: start: 20130620
  2. DIPRIVAN - KIT [Suspect]
     Indication: SEDATION
     Dosage: 2 MCG/ML
     Route: 042
     Dates: start: 20130621, end: 20130625
  3. DIPRIVAN - KIT [Suspect]
     Indication: SEDATION
     Route: 042
     Dates: start: 20130620, end: 20130625
  4. MEROPEN [Suspect]
     Indication: PNEUMONIA
     Route: 041
     Dates: start: 20130619, end: 20130625
  5. MEROPEN [Suspect]
     Indication: PNEUMONIA ASPIRATION
     Route: 041
     Dates: start: 20130619, end: 20130625
  6. BFLUID [Suspect]
     Indication: NUTRITIONAL SUPPLEMENTATION
     Dosage: 500 - 1000 ML/DAY
     Route: 041
     Dates: start: 20130618, end: 20130624
  7. TRIFLUID [Suspect]
     Indication: NUTRITIONAL SUPPLEMENTATION
     Route: 041
     Dates: start: 20130618, end: 20130621
  8. PASIL [Suspect]
     Indication: PNEUMONIA
     Route: 041
     Dates: start: 20130619, end: 20130624
  9. PASIL [Suspect]
     Indication: PNEUMONIA ASPIRATION
     Route: 041
     Dates: start: 20130619, end: 20130624
  10. TEICOPLANIN [Suspect]
     Indication: PNEUMONIA
     Dosage: 400 - 200/DAY
     Route: 041
     Dates: start: 20130619, end: 20130625
  11. TEICOPLANIN [Suspect]
     Indication: PNEUMONIA ASPIRATION
     Dosage: 400 - 200/DAY
     Route: 041
     Dates: start: 20130619, end: 20130625
  12. NEOPAREN NO.1 [Suspect]
     Indication: NUTRITIONAL SUPPLEMENTATION
     Route: 041
     Dates: start: 20130622, end: 20130624
  13. SEISHOKU [Concomitant]
     Dosage: 200 - 400 ML/DAY
     Route: 041
     Dates: start: 20130616, end: 20130625
  14. C TUCK [Concomitant]
     Indication: NUTRITIONAL SUPPLEMENTATION
     Route: 041
  15. NYROZIN [Concomitant]
     Indication: NUTRITIONAL SUPPLEMENTATION
     Route: 041
     Dates: start: 20130621
  16. REPLAS-2S [Concomitant]
     Indication: DEHYDRATION
     Route: 041
     Dates: start: 20130623
  17. REPLAS-2S [Concomitant]
     Indication: DEHYDRATION
     Route: 041
     Dates: start: 20130625
  18. GLUCOSE [Concomitant]
     Indication: NUTRITIONAL SUPPLEMENTATION
     Route: 041
     Dates: start: 20130625, end: 20130627
  19. HICALIQ RF [Concomitant]
     Indication: NUTRITIONAL SUPPLEMENTATION
     Route: 041
     Dates: start: 20130625
  20. MORIAMIN-S [Concomitant]
     Indication: NUTRITIONAL SUPPLEMENTATION
     Route: 041
     Dates: start: 20130625
  21. CEFLONIC [Concomitant]
     Indication: PNEUMONIA ASPIRATION
     Route: 042
     Dates: start: 20130615
  22. CEFLONIC [Concomitant]
     Indication: URINARY TRACT INFECTION
     Route: 042
     Dates: start: 20130615
  23. CEFLONIC [Concomitant]
     Indication: PNEUMONIA
     Route: 042
     Dates: start: 20130615
  24. SODIUM CHLORIDE [Concomitant]
     Indication: ELECTROLYTE IMBALANCE
     Route: 041

REACTIONS (4)
  - Liver disorder [Unknown]
  - Hyperkalaemia [Unknown]
  - Sinus tachycardia [Not Recovered/Not Resolved]
  - Cardiac failure [Not Recovered/Not Resolved]
